FAERS Safety Report 13662801 (Version 1)
Quarter: 2017Q2

REPORT INFORMATION
  Report Type: Spontaneous
  Country: US (occurrence: US)
  Receive Date: 20170616
  Receipt Date: 20170616
  Transmission Date: 20170830
  Serious: Yes (Other)
  Sender: FDA-Public Use
  Company Number: None

PATIENT
  Age: 87 Year
  Sex: Male
  Weight: 85.05 kg

DRUGS (1)
  1. ZYTIGA [Suspect]
     Active Substance: ABIRATERONE ACETATE
     Indication: PROSTATIC DISORDER
     Route: 048
     Dates: start: 20170426, end: 20170616

REACTIONS (3)
  - Fatigue [None]
  - Oedema peripheral [None]
  - Anaemia [None]

NARRATIVE: CASE EVENT DATE: 20170616
